FAERS Safety Report 4848251-6 (Version None)
Quarter: 2005Q4

REPORT INFORMATION
  Report Type: 
  Country: None (occurrence: None)
  Receive Date: 20051207
  Receipt Date: 20051207
  Transmission Date: 20060501
  Serious: Yes (Death)
  Sender: FDA-Public Use
  Company Number: None

PATIENT
  Sex: Female

DRUGS (3)
  1. CAPECITABINE [Suspect]
     Indication: COLON CANCER
     Dosage: 2500 MG BID X 7 DAYS Q 2 WKS
     Dates: start: 20051012, end: 20051204
  2. CETUXIMAB [Suspect]
     Dosage: 3992 MG
  3. OXALIPLATIN [Suspect]
     Dosage: 133 MG

REACTIONS (1)
  - DEATH [None]
